FAERS Safety Report 8998054 (Version 1)
Quarter: 2013Q1

REPORT INFORMATION
  Report Type: Spontaneous
  Country: GB (occurrence: GB)
  Receive Date: 20130104
  Receipt Date: 20130104
  Transmission Date: 20140127
  Serious: Yes (Disabling)
  Sender: FDA-Public Use
  Company Number: PHHY2012GB122038

PATIENT
  Age: 43 Year
  Sex: Female
  Weight: 94.34 kg

DRUGS (1)
  1. CHLORPHENIRAMINE MALEATE [Suspect]
     Indication: PROPHYLAXIS
     Route: 048
     Dates: start: 20120815, end: 20120819

REACTIONS (3)
  - Balance disorder [Unknown]
  - Vertigo [Unknown]
  - Visual field defect [Recovered/Resolved]
